FAERS Safety Report 19005544 (Version 1)
Quarter: 2021Q1

REPORT INFORMATION
  Report Type: Spontaneous
  Country: US (occurrence: US)
  Receive Date: 20210313
  Receipt Date: 20210313
  Transmission Date: 20210420
  Serious: Yes (Other)
  Sender: FDA-Public Use
  Company Number: US-JNJFOC-20190827294

PATIENT
  Age: 8 Month
  Sex: Male

DRUGS (2)
  1. IMODIUM [Suspect]
     Active Substance: LOPERAMIDE HYDROCHLORIDE
     Indication: PRODUCT USED FOR UNKNOWN INDICATION
     Route: 065
  2. REMODULIN [Suspect]
     Active Substance: TREPROSTINIL
     Indication: PULMONARY ARTERIAL HYPERTENSION
     Dosage: 106.3NG/KG/MIN
     Route: 058

REACTIONS (6)
  - Rash [Unknown]
  - Product use issue [Unknown]
  - Diarrhoea [Unknown]
  - Hypersensitivity [Unknown]
  - Abdominal pain [Unknown]
  - Off label use [Unknown]
